FAERS Safety Report 14210089 (Version 2)
Quarter: 2018Q1

REPORT INFORMATION
  Report Type: Spontaneous
  Country: US (occurrence: US)
  Receive Date: 20171121
  Receipt Date: 20180117
  Transmission Date: 20180508
  Serious: No
  Sender: FDA-Public Use
  Company Number: US-JNJFOC-20171106138

PATIENT
  Age: 55 Year
  Sex: Female
  Weight: 72.58 kg

DRUGS (4)
  1. SIMPONI [Suspect]
     Active Substance: GOLIMUMAB
     Indication: RHEUMATOID ARTHRITIS
     Route: 058
     Dates: start: 2012
  2. TRAMADOL. [Concomitant]
     Active Substance: TRAMADOL
     Indication: PAIN
     Dosage: AS NEEDED
     Route: 065
  3. VITAMIN D [Concomitant]
     Active Substance: CHOLECALCIFEROL
     Route: 065
  4. PROGESTERONE. [Concomitant]
     Active Substance: PROGESTERONE
     Indication: MENOPAUSE
     Dosage: BIOIDENTICAL HORMONE REPLACEMENT THERAPY FOR MENOPAUSE
     Route: 065

REACTIONS (4)
  - Drug dose omission [Unknown]
  - Inappropriate schedule of drug administration [Unknown]
  - Device malfunction [Unknown]
  - Complication associated with device [Unknown]

NARRATIVE: CASE EVENT DATE: 20171103
